FAERS Safety Report 18946789 (Version 1)
Quarter: 2021Q1

REPORT INFORMATION
  Report Type: Spontaneous
  Country: US (occurrence: US)
  Receive Date: 20210226
  Receipt Date: 20210226
  Transmission Date: 20210420
  Serious: No
  Sender: FDA-Public Use
  Company Number: US-EVOLUS, INC.-2021EV000010

PATIENT
  Sex: Female

DRUGS (4)
  1. JEUVEAU [Suspect]
     Active Substance: PRABOTULINUMTOXINA-XVFS
     Indication: SKIN WRINKLING
     Dosage: 2 UNITS EACH SIDE FOR CROW^S FEET, 5 UNITS FOR FOREHEAD AND 2 UNITS EACH SIDE FOR BROW LIFT
     Dates: start: 20201111
  2. JEUVEAU [Suspect]
     Active Substance: PRABOTULINUMTOXINA-XVFS
     Indication: PRODUCT USED FOR UNKNOWN INDICATION
  3. JEUVEAU [Suspect]
     Active Substance: PRABOTULINUMTOXINA-XVFS
     Indication: FACE LIFT
  4. JEUVEAU [Suspect]
     Active Substance: PRABOTULINUMTOXINA-XVFS
     Indication: SKIN WRINKLING
     Dosage: 12 UNITS EACH SIDE FOR CROW^S FEET, 20 UNITS FOR GLABELLAR LINE, 10 UNITS FOR FOREHEAD AND 2 UNITS E

REACTIONS (2)
  - Off label use [Unknown]
  - Drug effect less than expected [Unknown]
